FAERS Safety Report 24260821 (Version 1)
Quarter: 2024Q3

REPORT INFORMATION
  Report Type: Spontaneous
  Country: JP (occurrence: JP)
  Receive Date: 20240828
  Receipt Date: 20240828
  Transmission Date: 20241017
  Serious: Yes (Hospitalization, Other)
  Sender: ORGANON
  Company Number: JP-ORGANON-O2408JPN001838

PATIENT
  Age: 74 Year
  Sex: Male

DRUGS (3)
  1. CARBIDOPA\LEVODOPA [Suspect]
     Active Substance: CARBIDOPA\LEVODOPA
     Dosage: AT A CONVERSION OF LEVODOPA 365 MG A DAY
     Route: 048
  2. SELEGILINE HYDROCHLORIDE [Concomitant]
     Active Substance: SELEGILINE HYDROCHLORIDE
     Dosage: UNK
     Route: 065
  3. ROPINIROLE HYDROCHLORIDE [Concomitant]
     Active Substance: ROPINIROLE HYDROCHLORIDE
     Dosage: UNK
     Route: 065

REACTIONS (1)
  - Subarachnoid haemorrhage [Not Recovered/Not Resolved]
